FAERS Safety Report 7912916-X (Version None)
Quarter: 2011Q4

REPORT INFORMATION
  Report Type: 
  Country: None (occurrence: None)
  Receive Date: 20111114
  Receipt Date: 20111102
  Transmission Date: 20120403
  Serious: Yes (Other)
  Sender: FDA-Public Use
  Company Number: CA-ROCHE-1011735

PATIENT
  Sex: Female

DRUGS (2)
  1. ALTACE [Suspect]
     Indication: PRODUCT USED FOR UNKNOWN INDICATION
  2. XOLAIR [Suspect]
     Indication: ASTHMA
     Route: 058
     Dates: start: 20101129

REACTIONS (5)
  - DYSPNOEA [None]
  - NASAL CONGESTION [None]
  - HYPERTENSION [None]
  - INTRACRANIAL ANEURYSM [None]
  - PRODUCTIVE COUGH [None]
